FAERS Safety Report 21185347 (Version 1)
Quarter: 2022Q3

REPORT INFORMATION
  Report Type: Report from Study
  Country: CO (occurrence: CO)
  Receive Date: 20220808
  Receipt Date: 20220808
  Transmission Date: 20221026
  Serious: Yes (Other)
  Sender: FDA-Public Use
  Company Number: CO-BAYER-2021-204068

PATIENT
  Sex: Female

DRUGS (9)
  1. EYLEA [Suspect]
     Active Substance: AFLIBERCEPT
     Indication: Age-related macular degeneration
     Dosage: PATIENT PREVIOUSLY RECEIVED AN INJECTION TO OS; SOLUTION FOR INJECTION
  2. EYLEA [Suspect]
     Active Substance: AFLIBERCEPT
     Dosage: 2 MG, ONCE (OD); SOLUTION FOR INJECTION
     Dates: start: 20210210, end: 20210210
  3. EYLEA [Suspect]
     Active Substance: AFLIBERCEPT
     Dosage: 2 MG, ONCE (OD); SOLUTION FOR INJECTION
     Dates: start: 20210316, end: 20210316
  4. EYLEA [Suspect]
     Active Substance: AFLIBERCEPT
     Dosage: 2 MG, ONCE (OD); SOLUTION FOR INJECTION
     Dates: start: 20210409, end: 20210409
  5. EYLEA [Suspect]
     Active Substance: AFLIBERCEPT
     Dosage: 2 MG, ONCE (OD); SOLUTION FOR INJECTION
     Dates: start: 20210811, end: 20210811
  6. EYLEA [Suspect]
     Active Substance: AFLIBERCEPT
     Dosage: 2 MG, ONCE (OD); SOLUTION FOR INJECTION
     Route: 031
     Dates: start: 20210913, end: 20210913
  7. EYLEA [Suspect]
     Active Substance: AFLIBERCEPT
     Dosage: 2 MG, ONCE (OD); SOLUTION FOR INJECTION
     Route: 031
     Dates: start: 20211025, end: 20211025
  8. EYLEA [Suspect]
     Active Substance: AFLIBERCEPT
     Dosage: 2 MG, ONCE (OD); SOLUTION FOR INJECTION
     Route: 031
     Dates: start: 20220622, end: 20220622
  9. EYLEA [Suspect]
     Active Substance: AFLIBERCEPT
     Dosage: UNK (RIGHT EYE ); SOLUTION FOR INJECTION
     Dates: start: 20220725

REACTIONS (8)
  - Visual acuity reduced [Unknown]
  - Cataract [Unknown]
  - Vision blurred [Unknown]
  - Cataract [Unknown]
  - Inappropriate schedule of product administration [Unknown]
  - Inappropriate schedule of product administration [Unknown]
  - Intraocular lens implant [Unknown]
  - Cataract operation [Unknown]

NARRATIVE: CASE EVENT DATE: 20200101
